FAERS Safety Report 9234859 (Version 1)
Quarter: 2013Q2

REPORT INFORMATION
  Report Type: Spontaneous
  Country: FR (occurrence: FR)
  Receive Date: 20130416
  Receipt Date: 20130416
  Transmission Date: 20140414
  Serious: Yes (Hospitalization)
  Sender: FDA-Public Use
  Company Number: FR-PFIZER INC-2013113790

PATIENT
  Age: 91 Year
  Sex: Female

DRUGS (5)
  1. TRIATEC [Suspect]
     Indication: HYPERTENSION
     Dosage: UNK
     Route: 048
     Dates: end: 20130318
  2. FLEET PHOSPHO-SODA [Suspect]
     Indication: FAECALOMA
     Dosage: UNK
     Route: 048
     Dates: start: 20130316, end: 20130316
  3. AMLOR [Concomitant]
     Dosage: UNK
  4. KARDEGIC [Concomitant]
     Dosage: UNK
  5. TAHOR [Concomitant]
     Dosage: UNK

REACTIONS (4)
  - Renal failure acute [Not Recovered/Not Resolved]
  - Blood creatinine increased [Recovering/Resolving]
  - Blood urea increased [Not Recovered/Not Resolved]
  - Disorientation [Unknown]
